FAERS Safety Report 24530601 (Version 2)
Quarter: 2024Q4

REPORT INFORMATION
  Report Type: Spontaneous
  Country: GB (occurrence: GB)
  Receive Date: 20241021
  Receipt Date: 20241126
  Transmission Date: 20250114
  Serious: Yes (Other)
  Sender: MYLAN
  Company Number: GB-MYLANLABS-2024M1093840

PATIENT
  Sex: Male
  Weight: 70.9 kg

DRUGS (4)
  1. TOBI PODHALER [Suspect]
     Active Substance: TOBRAMYCIN
     Indication: Cystic fibrosis
     Dosage: 112 MILLIGRAM, BID
     Route: 055
     Dates: start: 202402, end: 202410
  2. TOBI PODHALER [Suspect]
     Active Substance: TOBRAMYCIN
     Indication: Pseudomonas infection
  3. COLISTIMETHATE SODIUM [Concomitant]
     Active Substance: COLISTIMETHATE SODIUM
     Dosage: UNK
     Route: 065
  4. KALYDECO [Concomitant]
     Active Substance: IVACAFTOR
     Dosage: UNK
     Route: 065

REACTIONS (3)
  - Pulmonary haemorrhage [Recovered/Resolved]
  - Off label use [Unknown]
  - Therapy cessation [Unknown]

NARRATIVE: CASE EVENT DATE: 20240201
